FAERS Safety Report 5087668-4 (Version None)
Quarter: 2006Q3

REPORT INFORMATION
  Report Type: 
  Country: None (occurrence: None)
  Receive Date: 20060823
  Receipt Date: 20060823
  Transmission Date: 20061208
  Serious: Yes (Other)
  Sender: FDA-Public Use
  Company Number: None

PATIENT
  Sex: Female
  Weight: 63.5036 kg

DRUGS (2)
  1. PRIMIDONE [Suspect]
     Indication: HEAD TITUBATION
     Dosage: 125MG  1 AT BEDTIME
     Dates: start: 20060605
  2. PROTONIX [Suspect]
     Indication: NAUSEA
     Dosage: 40MG  1 A DAY WHEN NEEDED
     Dates: start: 20060605

REACTIONS (10)
  - CHROMATOPSIA [None]
  - DIZZINESS [None]
  - FEELING ABNORMAL [None]
  - HALLUCINATION, VISUAL [None]
  - HYPERHIDROSIS [None]
  - NAUSEA [None]
  - PRURITUS [None]
  - RASH [None]
  - VISUAL DISTURBANCE [None]
  - VOMITING [None]
